FAERS Safety Report 19052666 (Version 1)
Quarter: 2021Q1

REPORT INFORMATION
  Report Type: Spontaneous
  Country: US (occurrence: US)
  Receive Date: 20210324
  Receipt Date: 20210324
  Transmission Date: 20210420
  Serious: Yes (Hospitalization, Other)
  Sender: FDA-Public Use
  Company Number: US-SUN PHARMACEUTICAL INDUSTRIES LTD-2021R1-287117

PATIENT
  Age: 23 Year
  Sex: Male

DRUGS (1)
  1. IBUPROFEN. [Suspect]
     Active Substance: IBUPROFEN
     Indication: PRODUCT USED FOR UNKNOWN INDICATION
     Dosage: UNK (ESTIMATED DOSE OF APPROXIMATELY 100 GRAMS, OR 1470MG/KG)
     Route: 048

REACTIONS (5)
  - Suicide attempt [Unknown]
  - Metabolic acidosis [Recovered/Resolved]
  - Intentional overdose [Unknown]
  - Renal injury [Recovered/Resolved]
  - Gastrointestinal haemorrhage [Recovered/Resolved]
